FAERS Safety Report 12880940 (Version 1)
Quarter: 2016Q4

REPORT INFORMATION
  Report Type: Spontaneous
  Country: IT (occurrence: IT)
  Receive Date: 20161025
  Receipt Date: 20161025
  Transmission Date: 20170207
  Serious: Yes (Other)
  Sender: FDA-Public Use
  Company Number: IT-THE MEDICINES COMPANY-IT-MDCO-16-00448

PATIENT

DRUGS (4)
  1. BISOPROLOL [Suspect]
     Active Substance: BISOPROLOL
     Indication: CARDIOVASCULAR DISORDER
     Dosage: NOT REPORTED
  2. ANGIOX [Suspect]
     Active Substance: BIVALIRUDIN
     Indication: CARDIOVASCULAR DISORDER
     Dosage: NOT REPORTED
  3. LOSARTAN. [Suspect]
     Active Substance: LOSARTAN
     Indication: CARDIOVASCULAR DISORDER
     Dosage: NOT REPORTED
  4. CLOPIDOGREL [Suspect]
     Active Substance: CLOPIDOGREL BISULFATE
     Indication: CARDIOVASCULAR DISORDER
     Dosage: NOT REPORTED

REACTIONS (1)
  - Kounis syndrome [Unknown]
